FAERS Safety Report 5366530-3 (Version None)
Quarter: 2007Q2

REPORT INFORMATION
  Report Type: 
  Country: None (occurrence: None)
  Receive Date: 20070622
  Receipt Date: 20070611
  Transmission Date: 20071010
  Serious: Yes (Other)
  Sender: FDA-Public Use
  Company Number: US-PFIZER INC-2007048859

PATIENT
  Sex: Male

DRUGS (3)
  1. LIPITOR [Suspect]
  2. LOVASTATIN [Suspect]
  3. ZETIA [Suspect]

REACTIONS (3)
  - BACK PAIN [None]
  - MUSCLE INJURY [None]
  - MYALGIA [None]
